FAERS Safety Report 6184256-3 (Version None)
Quarter: 2009Q2

REPORT INFORMATION
  Report Type: 
  Country: None (occurrence: None)
  Receive Date: 20090508
  Receipt Date: 20090429
  Transmission Date: 20091009
  Serious: Yes (Death, Life-Threatening, Hospitalization)
  Sender: FDA-Public Use
  Company Number: US-PFIZER INC-2009175276

PATIENT
  Sex: Female
  Weight: 73 kg

DRUGS (17)
  1. SUNITINIB MALATE [Suspect]
     Indication: SMALL CELL LUNG CANCER EXTENSIVE STAGE
     Dosage: 50 MG, DAILY, D1-28 Q42D
     Route: 048
     Dates: start: 20090128, end: 20090213
  2. ADVAIR HFA [Concomitant]
     Dosage: 500/50MG 2X/DAY
  3. CLOTRIMAZOLE [Concomitant]
     Route: 048
  4. BETAMETHASONE [Concomitant]
  5. COMPAZINE [Concomitant]
     Dosage: 10 MG, UNK
  6. FIBERCON [Concomitant]
  7. LEVOTHYROXINE [Concomitant]
     Dosage: 50 UG, UNK
     Route: 048
  8. LEVAQUIN [Concomitant]
     Dosage: 250 MG, UNK
     Route: 048
  9. LOVASTIN [Concomitant]
     Dosage: 20 MG, UNK
     Route: 048
  10. NEXIUM [Concomitant]
     Dosage: 40 MG, UNK
     Route: 048
  11. PLAVIX [Concomitant]
     Dosage: 75 MG, UNK
     Route: 048
  12. SPIRONOLACTONE [Concomitant]
     Dosage: 50 MG, UNK
  13. STOOL SOFTENER [Concomitant]
  14. TORSEMIDE [Concomitant]
     Dosage: 20 MG, UNK
  15. VESICARE [Concomitant]
     Dosage: 10 MG, UNK
     Route: 048
  16. POTASSIUM CHLORIDE [Concomitant]
     Dosage: 20 MEQ, UNK
  17. MONTELUKAST SODIUM [Concomitant]
     Dosage: 10 MG, UNK

REACTIONS (7)
  - ACUTE MYOCARDIAL INFARCTION [None]
  - BRONCHIAL OBSTRUCTION [None]
  - CARDIAC ARREST [None]
  - CARDIOPULMONARY FAILURE [None]
  - DEATH [None]
  - DEHYDRATION [None]
  - RESPIRATORY FAILURE [None]
